FAERS Safety Report 17987958 (Version 1)
Quarter: 2020Q3

REPORT INFORMATION
  Report Type: Spontaneous
  Country: US (occurrence: US)
  Receive Date: 20200707
  Receipt Date: 20200707
  Transmission Date: 20201103
  Serious: No
  Sender: FDA-Public Use
  Company Number: US-BRISTOL-MYERS SQUIBB COMPANY-BMS-2018-000094

PATIENT
  Sex: Female
  Weight: 81.65 kg

DRUGS (1)
  1. ORENCIA [Suspect]
     Active Substance: ABATACEPT
     Indication: PSORIATIC ARTHROPATHY
     Dosage: UNK
     Route: 042
     Dates: start: 201712

REACTIONS (4)
  - Headache [Unknown]
  - Rhinalgia [Unknown]
  - Rhinorrhoea [Unknown]
  - Drug ineffective [Unknown]
